FAERS Safety Report 4527859-1 (Version None)
Quarter: 2004Q4

REPORT INFORMATION
  Report Type: 
  Country: None (occurrence: None)
  Receive Date: 20041123
  Receipt Date: 20040921
  Transmission Date: 20050328
  Serious: Yes (Other)
  Sender: FDA-Public Use
  Company Number: ATO-04-0836

PATIENT
  Age: 73 Year
  Sex: Male

DRUGS (5)
  1. TRISENOX [Suspect]
     Indication: MYELODYSPLASTIC SYNDROME
     Dosage: 21 MG (0.25 MG/ KG, QD X 5D/7D), IVI
     Dates: start: 20040913, end: 20040917
  2. LOVASTATIN [Suspect]
     Indication: MYELODYSPLASTIC SYNDROME
     Dosage: 20 MG
     Dates: start: 20040913, end: 20040920
  3. VITAMIN B6 [Concomitant]
  4. VITAMIN B-12 [Concomitant]
  5. POTASSIUM CHLORIDE [Concomitant]

REACTIONS (2)
  - ALANINE AMINOTRANSFERASE INCREASED [None]
  - ASPARTATE AMINOTRANSFERASE INCREASED [None]
